FAERS Safety Report 4491492-0 (Version None)
Quarter: 2004Q4

REPORT INFORMATION
  Report Type: 
  Country: None (occurrence: None)
  Receive Date: 20041101
  Receipt Date: 20041022
  Transmission Date: 20050328
  Serious: Yes (Hospitalization)
  Sender: FDA-Public Use
  Company Number: K200401650

PATIENT
  Age: 89 Year
  Sex: Female

DRUGS (5)
  1. ALTACE [Suspect]
     Indication: HYPERTENSION
     Dosage: 5 MG, QD, ORAL
     Route: 048
  2. HYDROCHLOROTHIAZIDE [Suspect]
     Indication: HYPERTENSION
     Dosage: 25 MG, QD, ORAL
     Route: 048
  3. ASS ^CT-ARZNEIMITTEL^(ACETYLSALICYLIC ACID) TABLET [Concomitant]
     Indication: CORONARY ARTERY DISEASE
     Dosage: 100 MG, QD, ORAL
     Route: 048
     Dates: end: 20040709
  4. CORVATON - SLOW RELEASE ^AVENTIS PHARMA^ (MOLSIDOMINE) [Concomitant]
  5. NATIL (CYCLANDELATE) [Concomitant]

REACTIONS (3)
  - CHOLELITHIASIS [None]
  - DRUG INTERACTION [None]
  - GASTRITIS [None]
